FAERS Safety Report 25357071 (Version 5)
Quarter: 2025Q3

REPORT INFORMATION
  Report Type: Spontaneous
  Country: US (occurrence: US)
  Receive Date: 20250526
  Receipt Date: 20250711
  Transmission Date: 20251020
  Serious: No
  Sender: BIOGEN
  Company Number: US-BIOGEN-2025BI01299809

PATIENT
  Age: 60 Year
  Sex: Female

DRUGS (2)
  1. VUMERITY [Suspect]
     Active Substance: DIROXIMEL FUMARATE
     Indication: Multiple sclerosis
     Dosage: START DATE ALSO REPORTED AS 15-DEC-2024
     Route: 050
     Dates: start: 20241210, end: 20241221
  2. VUMERITY [Suspect]
     Active Substance: DIROXIMEL FUMARATE
     Dosage: START DATE AS 10-DEC-2024
     Route: 050
     Dates: start: 20241222

REACTIONS (4)
  - Underdose [Recovered/Resolved]
  - Muscular weakness [Not Recovered/Not Resolved]
  - Loss of consciousness [Unknown]
  - Gastrointestinal ulcer [Unknown]

NARRATIVE: CASE EVENT DATE: 20241215
